FAERS Safety Report 9459152 (Version 1)
Quarter: 2013Q3

REPORT INFORMATION
  Report Type: Spontaneous
  Country: US (occurrence: US)
  Receive Date: 20130814
  Receipt Date: 20130814
  Transmission Date: 20140515
  Serious: No
  Sender: FDA-Public Use
  Company Number: US-PFIZER INC-2013228414

PATIENT
  Age: 92 Year
  Sex: Female
  Weight: 68.03 kg

DRUGS (7)
  1. CELEBREX [Suspect]
     Indication: ARTHRITIS
     Dosage: 200 MG, 1X/DAY
     Route: 048
     Dates: start: 20130731
  2. VERAPAMIL [Concomitant]
     Indication: HYPERTENSION
     Dosage: 240 MG, UNK
  3. DIGOXIN [Concomitant]
     Indication: CARDIAC DISORDER
     Dosage: 125 MG, UNK
  4. GLIPIZIDE [Concomitant]
     Indication: DIABETES MELLITUS
     Dosage: 10 MG, UNK
  5. ONGLYZA [Concomitant]
     Indication: DIABETES MELLITUS
     Dosage: 25 MG, UNK
  6. LEVOTHYROXINE [Concomitant]
     Indication: THYROID DISORDER
     Dosage: 100 UG, UNK
  7. VITAMIN D [Concomitant]
     Dosage: UNK

REACTIONS (1)
  - Drug ineffective [Unknown]
